FAERS Safety Report 10112289 (Version 3)
Quarter: 2014Q2

REPORT INFORMATION
  Report Type: Spontaneous
  Country: US (occurrence: US)
  Receive Date: 20140425
  Receipt Date: 20140506
  Transmission Date: 20141212
  Serious: Yes (Death)
  Sender: FDA-Public Use
  Company Number: US-PFIZER INC-2014078790

PATIENT
  Age: 76 Year
  Sex: Male

DRUGS (1)
  1. VFEND [Suspect]
     Dosage: 200 MG, UNK

REACTIONS (1)
  - Death [Fatal]
